FAERS Safety Report 23444167 (Version 1)
Quarter: 2024Q1

REPORT INFORMATION
  Report Type: Spontaneous
  Country: US (occurrence: None)
  Receive Date: 20240125
  Receipt Date: 20240125
  Transmission Date: 20240409
  Serious: No
  Sender: FDA-Public Use
  Company Number: None

PATIENT
  Age: 7 Year
  Sex: Female

DRUGS (1)
  1. HUMATROPE [Suspect]
     Active Substance: SOMATROPIN
     Indication: Hypothyroidism
     Dosage: FREQUENCY : DAILY;?
     Route: 058
     Dates: start: 20231208

REACTIONS (1)
  - Vomiting [None]

NARRATIVE: CASE EVENT DATE: 20240122
